FAERS Safety Report 23890715 (Version 1)
Quarter: 2024Q2

REPORT INFORMATION
  Report Type: Spontaneous
  Country: US (occurrence: US)
  Receive Date: 20240523
  Receipt Date: 20240523
  Transmission Date: 20240716
  Serious: No
  Sender: FDA-Public Use
  Company Number: US-JNJFOC-20240558724

PATIENT

DRUGS (1)
  1. XARELTO [Suspect]
     Active Substance: RIVAROXABAN
     Indication: Portal vein thrombosis
     Route: 048

REACTIONS (3)
  - Underdose [Unknown]
  - Taste disorder [Unknown]
  - Off label use [Unknown]
